FAERS Safety Report 21612021 (Version 1)
Quarter: 2022Q4

REPORT INFORMATION
  Report Type: Spontaneous
  Country: AT (occurrence: AT)
  Receive Date: 20221118
  Receipt Date: 20221118
  Transmission Date: 20230113
  Serious: Yes (Death, Other)
  Sender: FDA-Public Use
  Company Number: AT-AMGEN-AUTSP2022192122

PATIENT

DRUGS (26)
  1. BEVACIZUMAB [Suspect]
     Active Substance: BEVACIZUMAB
     Indication: Brain neoplasm
     Dosage: UNK
     Route: 065
  2. EVEROLIMUS [Concomitant]
     Active Substance: EVEROLIMUS
     Indication: Product used for unknown indication
     Dosage: UNK
     Route: 065
  3. SIROLIMUS [Concomitant]
     Active Substance: SIROLIMUS
     Indication: Product used for unknown indication
     Dosage: UNK
     Route: 065
  4. TRAMETINIB [Concomitant]
     Active Substance: TRAMETINIB
     Indication: Product used for unknown indication
     Dosage: UNK
     Route: 065
  5. NINTEDANIB [Concomitant]
     Active Substance: NINTEDANIB
     Indication: Product used for unknown indication
     Dosage: UNK
     Route: 065
  6. DASATINIB [Concomitant]
     Active Substance: DASATINIB
     Indication: Product used for unknown indication
     Dosage: UNK
     Route: 065
  7. DABRAFENIB [Concomitant]
     Active Substance: DABRAFENIB
     Indication: Product used for unknown indication
     Dosage: UNK
     Route: 065
  8. ENTRECTINIB [Concomitant]
     Active Substance: ENTRECTINIB
     Indication: Product used for unknown indication
     Dosage: UNK
     Route: 065
  9. PANOBINOSTAT [Concomitant]
     Active Substance: PANOBINOSTAT
     Indication: Product used for unknown indication
     Dosage: UNK
     Route: 065
  10. RIBOCICLIB [Concomitant]
     Active Substance: RIBOCICLIB
     Indication: Product used for unknown indication
     Dosage: UNK
     Route: 065
  11. CRIZOTINIB [Concomitant]
     Active Substance: CRIZOTINIB
     Indication: Product used for unknown indication
     Dosage: UNK
     Route: 065
  12. IPILIMUMAB [Concomitant]
     Active Substance: IPILIMUMAB
     Indication: Product used for unknown indication
     Dosage: UNK
     Route: 065
  13. PONATINIB [Concomitant]
     Active Substance: PONATINIB
     Indication: Product used for unknown indication
     Dosage: UNK
     Route: 065
  14. NIRAPARIB [Concomitant]
     Active Substance: NIRAPARIB
     Indication: Product used for unknown indication
     Dosage: UNK
     Route: 065
  15. SELUMETINIB [Concomitant]
     Active Substance: SELUMETINIB
     Indication: Product used for unknown indication
     Dosage: UNK
     Route: 065
  16. AFATINIB [Concomitant]
     Active Substance: AFATINIB
     Indication: Product used for unknown indication
     Dosage: UNK
     Route: 065
  17. TAZEMETOSTAT [Concomitant]
     Active Substance: TAZEMETOSTAT
     Indication: Product used for unknown indication
     Dosage: UNK
     Route: 065
  18. PAZOPANIB [Concomitant]
     Active Substance: PAZOPANIB
     Indication: Product used for unknown indication
     Dosage: UNK
     Route: 065
  19. PEMBROLIZUMAB [Concomitant]
     Active Substance: PEMBROLIZUMAB
     Indication: Product used for unknown indication
     Dosage: UNK
     Route: 065
  20. ABEMACICLIB [Concomitant]
     Active Substance: ABEMACICLIB
     Indication: Product used for unknown indication
     Dosage: UNK
     Route: 065
  21. OLAPARIB [Concomitant]
     Active Substance: OLAPARIB
     Indication: Product used for unknown indication
     Dosage: UNK
     Route: 065
  22. REGORAFENIB [Concomitant]
     Active Substance: REGORAFENIB
     Indication: Product used for unknown indication
     Dosage: UNK
     Route: 065
  23. ALECTINIB [Concomitant]
     Active Substance: ALECTINIB
     Indication: Product used for unknown indication
     Dosage: UNK
     Route: 065
  24. SUNITINIB [Concomitant]
     Active Substance: SUNITINIB
     Indication: Product used for unknown indication
     Dosage: UNK
     Route: 065
  25. AVAPRITINIB [Concomitant]
     Active Substance: AVAPRITINIB
     Indication: Product used for unknown indication
     Dosage: UNK
     Route: 065
  26. IMATINIB [Concomitant]
     Active Substance: IMATINIB
     Indication: Product used for unknown indication
     Dosage: UNK
     Route: 065

REACTIONS (37)
  - Brain neoplasm [Fatal]
  - Acute respiratory distress syndrome [Fatal]
  - Central nervous system infection [Unknown]
  - Herpes simplex viraemia [Unknown]
  - Gastroenteritis norovirus [Unknown]
  - Gastroenteritis adenovirus [Unknown]
  - Gastroenteritis rotavirus [Unknown]
  - Gastroenteritis enteroviral [Unknown]
  - Gastroenteritis astroviral [Unknown]
  - Cytomegalovirus viraemia [Unknown]
  - Herpes simplex viraemia [Unknown]
  - Varicella zoster viraemia [Unknown]
  - Cytomegalovirus infection [Unknown]
  - JC virus infection [Unknown]
  - Polyomavirus-associated nephropathy [Unknown]
  - Enterovirus infection [Unknown]
  - Respiratory tract infection viral [Unknown]
  - Urinary tract infection viral [Unknown]
  - Rhinovirus infection [Unknown]
  - Gastrointestinal viral infection [Unknown]
  - COVID-19 [Unknown]
  - Influenza [Unknown]
  - Epstein-Barr virus infection [Unknown]
  - Parvovirus infection [Unknown]
  - Metapneumovirus infection [Unknown]
  - Respiratory syncytial virus infection [Unknown]
  - Human herpesvirus 6 infection [Unknown]
  - Human herpesvirus 7 infection [Unknown]
  - H1N1 influenza [Unknown]
  - Coxsackie viral infection [Unknown]
  - Viraemia [Unknown]
  - Adenovirus infection [Unknown]
  - Varicella zoster virus infection [Unknown]
  - Mucosal infection [Unknown]
  - Viral skin infection [Unknown]
  - Soft tissue infection [Unknown]
  - Off label use [Unknown]
